FAERS Safety Report 15439836 (Version 1)
Quarter: 2018Q3

REPORT INFORMATION
  Report Type: Spontaneous
  Country: US (occurrence: US)
  Receive Date: 20180925
  Receipt Date: 20180925
  Transmission Date: 20181010
  Serious: Yes (Hospitalization)
  Sender: FDA-Public Use
  Company Number: None

PATIENT
  Age: 45 Year
  Sex: Female
  Weight: 86 kg

DRUGS (1)
  1. CLOPIDOGREL [Suspect]
     Active Substance: CLOPIDOGREL BISULFATE
     Indication: ACUTE MYOCARDIAL INFARCTION
     Dates: start: 20180629, end: 20180723

REACTIONS (5)
  - Liver injury [None]
  - Pyrexia [None]
  - Rash [None]
  - Liver function test abnormal [None]
  - Drug hypersensitivity [None]

NARRATIVE: CASE EVENT DATE: 20180719
